FAERS Safety Report 25510582 (Version 1)
Quarter: 2025Q3

REPORT INFORMATION
  Report Type: Spontaneous
  Country: US (occurrence: US)
  Receive Date: 20250703
  Receipt Date: 20250703
  Transmission Date: 20251020
  Serious: No
  Sender: RADIUS PHARM
  Company Number: US-RADIUS HEALTH INC.-2024US005932

PATIENT
  Age: 77 Year
  Sex: Female

DRUGS (11)
  1. TYMLOS [Suspect]
     Active Substance: ABALOPARATIDE
     Indication: Senile osteoporosis
     Route: 058
     Dates: start: 20240530, end: 20241126
  2. CALCIUM\VITAMIN D [Concomitant]
     Active Substance: CALCIUM\VITAMIN D
     Indication: Product used for unknown indication
  3. ZETIA [Concomitant]
     Active Substance: EZETIMIBE
     Indication: Product used for unknown indication
  4. TACLONEX [Concomitant]
     Active Substance: BETAMETHASONE DIPROPIONATE\CALCIPOTRIENE\CALCIPOTRIENE HYDRATE
     Indication: Product used for unknown indication
  5. VITAMIN D3 [Concomitant]
     Active Substance: CHOLECALCIFEROL
     Indication: Product used for unknown indication
  6. ESTRACE [Concomitant]
     Active Substance: ESTRADIOL
     Indication: Product used for unknown indication
  7. CLOBETASOL [Concomitant]
     Active Substance: CLOBETASOL
     Indication: Product used for unknown indication
  8. CYMBALTA [Concomitant]
     Active Substance: DULOXETINE HYDROCHLORIDE
     Indication: Product used for unknown indication
  9. PRALUENT [Concomitant]
     Active Substance: ALIROCUMAB
     Indication: Product used for unknown indication
  10. AMOXICILLIN [Concomitant]
     Active Substance: AMOXICILLIN
     Indication: Product used for unknown indication
  11. ALIROCUMAB [Concomitant]
     Active Substance: ALIROCUMAB
     Indication: Product used for unknown indication

REACTIONS (8)
  - Orthostatic hypotension [Recovered/Resolved]
  - Hypertension [Recovered/Resolved]
  - Dizziness [Recovered/Resolved]
  - Therapy interrupted [Recovered/Resolved]
  - Nausea [Recovered/Resolved]
  - Lethargy [Recovered/Resolved]
  - Dyspnoea [Recovered/Resolved]
  - Depression [Recovered/Resolved]

NARRATIVE: CASE EVENT DATE: 20240901
